FAERS Safety Report 12675344 (Version 1)
Quarter: 2016Q3

REPORT INFORMATION
  Report Type: Spontaneous
  Country: US (occurrence: US)
  Receive Date: 20160822
  Receipt Date: 20160822
  Transmission Date: 20161109
  Serious: No
  Sender: FDA-Public Use
  Company Number: US-009507513-1608USA008973

PATIENT
  Sex: Female
  Weight: 102.4 kg

DRUGS (1)
  1. NEXPLANON [Suspect]
     Active Substance: ETONOGESTREL
     Dosage: 1 IMPLANT 3 YEARS
     Route: 059

REACTIONS (3)
  - Product quality issue [Unknown]
  - Complication of device insertion [Not Recovered/Not Resolved]
  - No adverse event [Unknown]
